FAERS Safety Report 5777537-6 (Version None)
Quarter: 2008Q2

REPORT INFORMATION
  Report Type: 
  Country: None (occurrence: None)
  Receive Date: 20080618
  Receipt Date: 20080605
  Transmission Date: 20081010
  Serious: Yes (Other)
  Sender: FDA-Public Use
  Company Number: US-BAYER-200811657BCC

PATIENT
  Age: 30 Year
  Sex: Male
  Weight: 73 kg

DRUGS (8)
  1. ASPIRIN [Suspect]
     Indication: ROUTINE HEALTH MAINTENANCE
     Dosage: UNIT DOSE: 325 MG
     Route: 048
     Dates: end: 20080425
  2. ASPIRIN [Suspect]
     Dosage: UNIT DOSE: 325 MG
     Route: 048
  3. ASPIRIN [Suspect]
     Indication: DRUG USE FOR UNKNOWN INDICATION
     Route: 048
  4. NATURAL ACID NEUTRALIZER [Concomitant]
  5. STANDARDIZED EXTRACT HERB [Concomitant]
  6. RICE BRAN MINERALS [Concomitant]
  7. WHOLE FOOD VITAMINS [Concomitant]
  8. SLEEPINAL [Concomitant]

REACTIONS (3)
  - DYSKINESIA [None]
  - NIGHTMARE [None]
  - THINKING ABNORMAL [None]
